FAERS Safety Report 23455111 (Version 1)
Quarter: 2024Q1

REPORT INFORMATION
  Report Type: Report from Study
  Country: US (occurrence: None)
  Receive Date: 20240130
  Receipt Date: 20240130
  Transmission Date: 20240409
  Serious: Yes (Other)
  Sender: FDA-Public Use
  Company Number: 2024A018905

PATIENT
  Sex: Male
  Weight: 80.7 kg

DRUGS (8)
  1. CALQUENCE [Suspect]
     Active Substance: ACALABRUTINIB
     Indication: Mantle cell lymphoma
     Route: 048
  2. CARBIDOPA\LEVODOPA [Concomitant]
     Active Substance: CARBIDOPA\LEVODOPA
  3. ERYTHROMYCIN [Concomitant]
     Active Substance: ERYTHROMYCIN
  4. IRBESARTAN [Concomitant]
     Active Substance: IRBESARTAN
  5. LYSINE [Concomitant]
     Active Substance: LYSINE
  6. RYTARY [Concomitant]
     Active Substance: CARBIDOPA\LEVODOPA
  7. DOCETAXEL [Concomitant]
     Active Substance: DOCETAXEL\DOCETAXEL ANHYDROUS
     Route: 042
  8. GEMCITABINE HYDROCHLORIDE [Concomitant]
     Active Substance: GEMCITABINE HYDROCHLORIDE

REACTIONS (1)
  - Bladder pain [Recovering/Resolving]
